FAERS Safety Report 10045952 (Version 2)
Quarter: 2014Q2

REPORT INFORMATION
  Report Type: Spontaneous
  Country: NL (occurrence: NL)
  Receive Date: 20140330
  Receipt Date: 20140424
  Transmission Date: 20141212
  Serious: Yes (Death)
  Sender: FDA-Public Use
  Company Number: NL-TEVA-469872ISR

PATIENT
  Age: 64 Year
  Sex: Male

DRUGS (15)
  1. IPRAMOL STERI-NEB VERNEVELOPL 0,2/1MG/ML FL2,5ML [Suspect]
     Indication: LUNG DISORDER
     Dosage: 8 DOSAGE FORMS DAILY;
     Route: 055
     Dates: start: 201208
  2. IPRAMOL STERI-NEB VERNEVELOPL 0,2/1MG/ML FL2,5ML [Suspect]
     Indication: CHRONIC OBSTRUCTIVE PULMONARY DISEASE
  3. BUMETANIDE [Concomitant]
     Indication: PULMONARY HYPERTENSION
     Dosage: 2 MILLIGRAM DAILY;
     Route: 048
     Dates: start: 2009
  4. MICROLAX [Concomitant]
  5. DOXYCYCLINE [Concomitant]
  6. SPIRONOLACTON [Concomitant]
     Indication: PULMONARY HYPERTENSION
     Dosage: 25 MILLIGRAM DAILY;
     Route: 048
  7. THEOLAIR [Concomitant]
     Indication: CHRONIC OBSTRUCTIVE PULMONARY DISEASE
     Dosage: 500 MILLIGRAM DAILY;
     Dates: start: 20120723
  8. ATROVENT [Concomitant]
     Dates: start: 2011, end: 2012
  9. ACENOCOUMAROL [Concomitant]
     Indication: ATRIAL FIBRILLATION
     Route: 048
     Dates: start: 2004
  10. ALVESCO [Concomitant]
     Indication: CHRONIC OBSTRUCTIVE PULMONARY DISEASE
     Dosage: 160 MICROGRAM DAILY;
     Route: 055
     Dates: start: 2009
  11. METFORMINE [Concomitant]
     Dosage: 1000 MILLIGRAM DAILY;
     Dates: start: 2004
  12. PANTOZOL [Concomitant]
     Dosage: 40 MILLIGRAM DAILY;
     Route: 048
  13. METOPROLOL [Concomitant]
  14. LISINOPRIL [Concomitant]
  15. MAGNESIUM TABLETS [Concomitant]

REACTIONS (13)
  - Death [Fatal]
  - Palpitations [Unknown]
  - Gait disturbance [Unknown]
  - Fatigue [Unknown]
  - Throat tightness [Unknown]
  - Dyspnoea [Unknown]
  - Cyanosis [Unknown]
  - Fluid retention [Unknown]
  - Heart rate increased [Unknown]
  - Nausea [Unknown]
  - Vision blurred [Unknown]
  - Oxygen saturation decreased [Unknown]
  - Heart rate abnormal [Unknown]
